FAERS Safety Report 8265352 (Version 3)
Quarter: 2012Q4

REPORT INFORMATION
  Report Type: 
  Country: BR (occurrence: BR)
  Receive Date: 20111128
  Receipt Date: 20121005
  Transmission Date: 20130627
  Serious: Yes (Hospitalization)
  Sender: FDA-Public Use
  Company Number: PHHO2011BR06065

PATIENT
  Age: 64 Year
  Sex: Female
  Weight: 62 kg

DRUGS (24)
  1. BLINDED AFINITOR [Suspect]
     Indication: BREAST CANCER METASTATIC
     Dosage: Double blinded
     Route: 048
     Dates: start: 20101008, end: 20110331
  2. BLINDED NO TREATMENT RECEIVED [Suspect]
     Indication: BREAST CANCER METASTATIC
     Dosage: Double blinded
     Route: 048
     Dates: start: 20101008, end: 20110331
  3. BLINDED PLACEBO [Suspect]
     Indication: BREAST CANCER METASTATIC
     Dosage: Double blinded
     Route: 048
     Dates: start: 20101008, end: 20110331
  4. BLINDED AFINITOR [Suspect]
     Dosage: Double blinded
     Route: 048
     Dates: start: 20110420
  5. BLINDED NO TREATMENT RECEIVED [Suspect]
     Dosage: Double blinded
     Route: 048
     Dates: start: 20110420
  6. BLINDED PLACEBO [Suspect]
     Dosage: Double blinded
     Route: 048
     Dates: start: 20110420
  7. COMPARATOR TRASTUZUMAB [Suspect]
     Indication: BREAST CANCER METASTATIC
     Dosage: 2 mg/kg
     Route: 042
     Dates: start: 20101008, end: 20110331
  8. COMPARATOR TRASTUZUMAB [Suspect]
     Dosage: 2 mg/kg
     Route: 042
     Dates: start: 20110414
  9. COMPARATOR PACLITAXEL [Suspect]
     Indication: BREAST CANCER METASTATIC
     Dosage: 80 mg/m2
     Route: 042
     Dates: start: 20101008, end: 20110331
  10. VASOPRIL [Concomitant]
     Indication: HYPERTENSION
     Dosage: 10 mg, BID
     Route: 048
     Dates: start: 2004
  11. HYDROCHLOROTHIAZID [Concomitant]
     Indication: HYPERTENSION
     Dosage: 25 mg, QD
     Route: 048
     Dates: start: 20110218, end: 20110401
  12. DIAMICRON [Concomitant]
     Indication: DIABETES MELLITUS
     Dosage: 80 mg, BID
     Route: 048
     Dates: start: 20110218, end: 20110401
  13. INSULIN [Concomitant]
     Indication: DIABETES MELLITUS
     Dosage: 4 IU, BID
     Route: 058
     Dates: start: 20110318, end: 20110331
  14. NPH INSULIN [Concomitant]
     Indication: DIABETES MELLITUS
     Dosage: 10 IU, QD
     Route: 058
     Dates: start: 20110318, end: 20110401
  15. NPH INSULIN [Concomitant]
     Dosage: 6 IU, QD
     Dates: start: 20110318
  16. SYNTHROID [Concomitant]
     Indication: HYPOTHYROIDISM
     Dosage: 150 ug, QD
     Route: 048
     Dates: start: 20110218
  17. ACETYLSALICYLIC ACID [Concomitant]
     Indication: PROPHYLAXIS
     Dosage: 200 mg, QD
     Route: 048
     Dates: start: 20110218, end: 20110401
  18. SIMVASTATIN [Concomitant]
     Indication: PROPHYLAXIS
     Dosage: 20 mg, BID
     Dates: start: 20110218
  19. DIPYRONE [Concomitant]
     Indication: BACK PAIN
  20. DIPYRONE [Concomitant]
     Indication: FLANK PAIN
  21. MORPHINE [Concomitant]
     Indication: BACK PAIN
  22. MORPHINE [Concomitant]
     Indication: FLANK PAIN
  23. ONDANSETRON [Concomitant]
     Indication: PROPHYLAXIS OF NAUSEA AND VOMITING
     Dosage: 80 mg, UNK
     Route: 048
     Dates: start: 20110328, end: 20110331
  24. OMEPRAZOLE [Concomitant]
     Dosage: 40 mg, BID
     Route: 048
     Dates: start: 20110311, end: 20110331

REACTIONS (1)
  - Cholecystitis [Recovered/Resolved]
